FAERS Safety Report 9353342 (Version 2)
Quarter: 2013Q2

REPORT INFORMATION
  Report Type: Report from Study
  Country: CA (occurrence: CA)
  Receive Date: 20130618
  Receipt Date: 20130624
  Transmission Date: 20140414
  Serious: Yes (Hospitalization)
  Sender: FDA-Public Use
  Company Number: CA-JNJFOC-20130609907

PATIENT
  Age: 59 Year
  Sex: Female
  Weight: 70.1 kg

DRUGS (9)
  1. REMICADE [Suspect]
     Indication: CROHN^S DISEASE
     Dosage: 35TH INFUSION
     Route: 042
     Dates: start: 20130614
  2. REMICADE [Suspect]
     Indication: CROHN^S DISEASE
     Route: 042
     Dates: start: 20130514
  3. REMICADE [Suspect]
     Indication: CROHN^S DISEASE
     Route: 042
     Dates: start: 20091218
  4. METHOTREXATE [Concomitant]
     Route: 065
  5. ALENDRONATE [Concomitant]
     Route: 065
  6. LAMICTAL [Concomitant]
     Route: 065
  7. SEROQUEL [Concomitant]
     Route: 065
  8. IMOVANE [Concomitant]
     Route: 065
  9. CYMBALTA [Concomitant]
     Route: 065

REACTIONS (1)
  - Depression [Recovered/Resolved]
